APPROVED DRUG PRODUCT: ECONAZOLE NITRATE
Active Ingredient: ECONAZOLE NITRATE
Strength: 1%
Dosage Form/Route: CREAM;TOPICAL
Application: A076005 | Product #001 | TE Code: AB
Applicant: SUN PHARMA CANADA INC
Approved: Nov 26, 2002 | RLD: No | RS: No | Type: RX